FAERS Safety Report 7276523-7 (Version None)
Quarter: 2011Q1

REPORT INFORMATION
  Report Type: 
  Country: None (occurrence: None)
  Receive Date: 20110204
  Receipt Date: 20110124
  Transmission Date: 20110831
  Serious: Yes (Hospitalization)
  Sender: FDA-Public Use
  Company Number: SE-PFIZER INC-2011023830

PATIENT
  Age: 38 Year
  Sex: Female

DRUGS (1)
  1. IPREN [Suspect]
     Indication: UROSEPSIS
     Dosage: UNK
     Route: 048
     Dates: start: 20101101

REACTIONS (5)
  - OVERDOSE [None]
  - DEHYDRATION [None]
  - HYPOTENSION [None]
  - ACUTE RESPIRATORY DISTRESS SYNDROME [None]
  - RENAL FAILURE ACUTE [None]
